FAERS Safety Report 10161980 (Version 1)
Quarter: 2014Q2

REPORT INFORMATION
  Report Type: Spontaneous
  Country: US (occurrence: None)
  Receive Date: 20140507
  Receipt Date: 20140507
  Transmission Date: 20141212
  Serious: Yes (Other)
  Sender: FDA-Public Use
  Company Number: AUR-APL-2014-05200

PATIENT
  Age: 63 Year
  Sex: Female

DRUGS (6)
  1. NAPROXEN (NAPROXEN) [Suspect]
     Indication: PRODUCT USED FOR UNKNOWN INDICATION
  2. METFORMIN [Suspect]
     Indication: DIABETES MELLITUS
     Dates: start: 1990
  3. IBUPROFEN (IBUPROFEN) [Suspect]
     Indication: PRODUCT USED FOR UNKNOWN INDICATION
  4. CELEBREX (CELECOXIB) [Suspect]
     Indication: PRODUCT USED FOR UNKNOWN INDICATION
  5. CORTISONE (CORTISONE) [Suspect]
     Indication: CARPAL TUNNEL SYNDROME
     Dates: start: 1999, end: 2012
  6. ALEVE [Suspect]
     Indication: PRODUCT USED FOR UNKNOWN INDICATION

REACTIONS (9)
  - Diabetes mellitus [None]
  - Gastrointestinal inflammation [None]
  - Colitis ulcerative [None]
  - Irritable bowel syndrome [None]
  - Spinal column stenosis [None]
  - Bone disorder [None]
  - Colitis [None]
  - Headache [None]
  - Large intestine polyp [None]
